FAERS Safety Report 9903724 (Version 1)
Quarter: 2014Q1

REPORT INFORMATION
  Report Type: Spontaneous
  Country: FR (occurrence: FR)
  Receive Date: 20140217
  Receipt Date: 20140217
  Transmission Date: 20141002
  Serious: Yes (Death, Other)
  Sender: FDA-Public Use
  Company Number: FR-ROCHE-1347114

PATIENT
  Age: 77 Year
  Sex: Female

DRUGS (3)
  1. TOCILIZUMAB [Suspect]
     Indication: TEMPORAL ARTERITIS
     Dosage: 3 INFUSIONS
     Route: 065
  2. ASPIRIN [Concomitant]
     Route: 065
  3. HEPARIN [Concomitant]

REACTIONS (4)
  - Death [Fatal]
  - Staphylococcal sepsis [Unknown]
  - Cardiogenic shock [Unknown]
  - Ejection fraction decreased [Unknown]
